FAERS Safety Report 12323044 (Version 1)
Quarter: 2016Q2

REPORT INFORMATION
  Report Type: Spontaneous
  Country: US (occurrence: US)
  Receive Date: 20160502
  Receipt Date: 20160502
  Transmission Date: 20160815
  Serious: No
  Sender: FDA-Public Use
  Company Number: US-JNJFOC-20160415970

PATIENT
  Age: 66 Year
  Sex: Male
  Weight: 68.04 kg

DRUGS (4)
  1. IMODIUM MULTI-SYMPTOM RELIEF [Suspect]
     Active Substance: DIMETHICONE\LOPERAMIDE HYDROCHLORIDE
     Indication: DIARRHOEA
     Route: 048
     Dates: start: 20160415
  2. CENTRIM [Concomitant]
     Indication: NUTRITIONAL SUPPLEMENTATION
     Dosage: INTERVAL: 5 YEARS
     Route: 065
  3. ASPIRIN. [Concomitant]
     Active Substance: ASPIRIN
     Indication: NUTRITIONAL SUPPLEMENTATION
     Dosage: INTERVAL: 5 YEARS
     Route: 065
  4. IMODIUM MULTI-SYMPTOM RELIEF [Suspect]
     Active Substance: DIMETHICONE\LOPERAMIDE HYDROCHLORIDE
     Route: 048

REACTIONS (4)
  - Dysgeusia [Unknown]
  - Dysphagia [Recovered/Resolved]
  - Foreign body [Recovered/Resolved]
  - Incorrect dose administered [Unknown]

NARRATIVE: CASE EVENT DATE: 20160415
